FAERS Safety Report 8020895-2 (Version None)
Quarter: 2011Q4

REPORT INFORMATION
  Report Type: 
  Country: None (occurrence: None)
  Receive Date: 20111229
  Receipt Date: 20111229
  Transmission Date: 20120403
  Serious: Yes (Hospitalization)
  Sender: FDA-Public Use
  Company Number: None

PATIENT
  Age: 58 Year
  Sex: Female
  Weight: 65.5 kg

DRUGS (2)
  1. ROPINIROLE [Suspect]
  2. RISPERDAL [Suspect]
     Indication: PARKINSON'S DISEASE
     Dates: start: 20110101

REACTIONS (2)
  - MEDICATION ERROR [None]
  - PARKINSON'S DISEASE [None]
